FAERS Safety Report 17483699 (Version 1)
Quarter: 2020Q1

REPORT INFORMATION
  Report Type: Spontaneous
  Country: US (occurrence: US)
  Receive Date: 20200301
  Receipt Date: 20200301
  Transmission Date: 20200409
  Serious: Yes (Hospitalization)
  Sender: FDA-Public Use
  Company Number: None

PATIENT
  Age: 60 Year
  Sex: Male
  Weight: 70.2 kg

DRUGS (3)
  1. ETOPOSIDE. [Concomitant]
     Active Substance: ETOPOSIDE
     Dates: start: 20190910, end: 20191121
  2. CARBOPLATIN. [Concomitant]
     Active Substance: CARBOPLATIN
     Dates: start: 20190910, end: 20191119
  3. TECENTRIQ [Suspect]
     Active Substance: ATEZOLIZUMAB
     Indication: SMALL CELL CARCINOMA
     Dosage: ?          OTHER FREQUENCY:EVERY 3 WEEKS;?
     Route: 041
     Dates: start: 20190910, end: 20200220

REACTIONS (2)
  - Diabetic ketoacidosis [None]
  - Diabetes mellitus [None]

NARRATIVE: CASE EVENT DATE: 20200226
